FAERS Safety Report 5376145-9 (Version None)
Quarter: 2007Q3

REPORT INFORMATION
  Report Type: 
  Country: None (occurrence: None)
  Receive Date: 20070702
  Receipt Date: 20070628
  Transmission Date: 20080115
  Serious: Yes (Death)
  Sender: FDA-Public Use
  Company Number: US-SANOFI-SYNTHELABO-F03200700129

PATIENT
  Age: 68 Year
  Sex: Male

DRUGS (4)
  1. TARCEVA [Suspect]
     Indication: HEPATIC NEOPLASM MALIGNANT
     Route: 048
     Dates: start: 20070516, end: 20070501
  2. GEMZAR [Suspect]
     Indication: HEPATIC NEOPLASM MALIGNANT
     Route: 042
     Dates: start: 20070501, end: 20070501
  3. OXALIPLATIN [Suspect]
     Indication: HEPATIC NEOPLASM MALIGNANT
     Route: 042
     Dates: start: 20070501, end: 20070501
  4. COUMADIN [Suspect]
     Indication: THROMBOSIS
     Dosage: 2.5 TO 5.0 MG DAILY
     Route: 048

REACTIONS (1)
  - CEREBRAL HAEMORRHAGE [None]
